FAERS Safety Report 6525948-3 (Version None)
Quarter: 2010Q1

REPORT INFORMATION
  Report Type: 
  Country: None (occurrence: None)
  Receive Date: 20100104
  Receipt Date: 20091221
  Transmission Date: 20100710
  Serious: Yes (Other)
  Sender: FDA-Public Use
  Company Number: JP-EISAI INC.-E2020-05750-SPO-JP

PATIENT
  Age: 88 Year
  Sex: Female

DRUGS (3)
  1. ARICEPT [Suspect]
     Indication: DEMENTIA ALZHEIMER'S TYPE
     Route: 048
     Dates: start: 20060901, end: 20091210
  2. ARICEPT [Suspect]
     Route: 048
     Dates: start: 20091211, end: 20091215
  3. ARICEPT [Suspect]
     Route: 048
     Dates: start: 20091216

REACTIONS (3)
  - DELIRIUM [None]
  - INSOMNIA [None]
  - TREMOR [None]
